FAERS Safety Report 14569832 (Version 1)
Quarter: 2018Q1

REPORT INFORMATION
  Report Type: Spontaneous
  Country: US (occurrence: US)
  Receive Date: 20180224
  Receipt Date: 20180224
  Transmission Date: 20180509
  Serious: No
  Sender: FDA-Public Use
  Company Number: US-DRREDDYS-USA/USA/17/0095592

PATIENT
  Age: 48 Year
  Sex: Female

DRUGS (1)
  1. ZEMBRACE SYMTOUCH [Suspect]
     Active Substance: SUMATRIPTAN SUCCINATE
     Indication: PRODUCT USED FOR UNKNOWN INDICATION
     Dosage: 3 MG/0.5 ML
     Route: 058

REACTIONS (2)
  - Nausea [Recovered/Resolved]
  - Dizziness [Recovered/Resolved]
